FAERS Safety Report 21482909 (Version 1)
Quarter: 2022Q4

REPORT INFORMATION
  Report Type: Spontaneous
  Country: NL (occurrence: NL)
  Receive Date: 20221020
  Receipt Date: 20221020
  Transmission Date: 20230112
  Serious: Yes (Death, Hospitalization, Other)
  Sender: FDA-Public Use
  Company Number: NL-JUBILANT PHARMA LTD-2022NL000356

PATIENT
  Age: 23 Year
  Sex: Male

DRUGS (12)
  1. OLANZAPINE [Suspect]
     Active Substance: OLANZAPINE
     Indication: Psychotic disorder
     Dosage: 20 MILLIGRAM, 20 MG,UNK
     Route: 048
  2. OLANZAPINE [Suspect]
     Active Substance: OLANZAPINE
     Dosage: 15 MILLIGRAM, 15 MG,UNK, AT DAY 21
     Route: 048
  3. OLANZAPINE [Suspect]
     Active Substance: OLANZAPINE
     Dosage: 20 MILLIGRAM, 20 MG,UNK
     Route: 048
  4. OLANZAPINE [Suspect]
     Active Substance: OLANZAPINE
     Dosage: 25 MILLIGRAM, 25 MG,UNK
     Route: 048
  5. CLOZAPINE [Suspect]
     Active Substance: CLOZAPINE
     Indication: Psychotic disorder
     Route: 048
  6. CLOZAPINE [Suspect]
     Active Substance: CLOZAPINE
     Dosage: 12.5 MILLIGRAM, DAILY, 12.5 MG, ONCE PER DAY (AT DAY 1)
     Route: 048
  7. CLOZAPINE [Suspect]
     Active Substance: CLOZAPINE
     Dosage: 75 MILLIGRAM, 75 MG,UNK (AT DAY 8)
     Route: 048
  8. CLOZAPINE [Suspect]
     Active Substance: CLOZAPINE
     Dosage: 50 MILLIGRAM, 125 MG,UNK (AT DAY 15)
     Route: 048
  9. CLOZAPINE [Suspect]
     Active Substance: CLOZAPINE
     Dosage: 25 MILLIGRAM, DAILY, 25 MG, ONCE PER DAY (AT DAY 3)
     Route: 065
  10. CLOZAPINE [Suspect]
     Active Substance: CLOZAPINE
     Dosage: 100 MILLIGRAM, 100 MG,UNK (FROM DAY 10 TO DAY 14)
     Route: 065
  11. CLOZAPINE [Suspect]
     Active Substance: CLOZAPINE
     Dosage: 150 MILLIGRAM, 150 MG,UNK (AT DAY 17)
     Route: 048
  12. CLOZAPINE [Suspect]
     Active Substance: CLOZAPINE
     Dosage: 250 MILLIGRAM, 250 MG,UNK (AT DAY 21)
     Route: 048

REACTIONS (7)
  - Vomiting [Fatal]
  - Nausea [Fatal]
  - Intestinal pseudo-obstruction [Fatal]
  - Abdominal distension [Fatal]
  - Abdominal pain [Fatal]
  - Gastrointestinal hypomotility [Fatal]
  - Therapy partial responder [Recovering/Resolving]
